FAERS Safety Report 23668539 (Version 4)
Quarter: 2025Q1

REPORT INFORMATION
  Report Type: Report from Study
  Country: US (occurrence: US)
  Receive Date: 20240325
  Receipt Date: 20250205
  Transmission Date: 20250409
  Serious: No
  Sender: AMGEN
  Company Number: US-AMGEN-USASP2024056328

PATIENT
  Sex: Male

DRUGS (6)
  1. ENBREL [Suspect]
     Active Substance: ETANERCEPT
     Indication: Psoriatic arthropathy
     Dosage: 50 MILLIGRAM, 2 TIMES/WK
     Route: 065
  2. ENBREL [Suspect]
     Active Substance: ETANERCEPT
     Dosage: 50 MILLIGRAM, QWK
     Route: 065
     Dates: start: 202403, end: 202405
  3. TALTZ [Concomitant]
     Active Substance: IXEKIZUMAB
     Indication: Product used for unknown indication
     Route: 065
  4. PREDNISONE [Concomitant]
     Active Substance: PREDNISONE
     Dosage: UNK UNK, QD
  5. GOLD [Concomitant]
     Active Substance: GOLD
     Route: 065
  6. METHOTREXATE [Concomitant]
     Active Substance: METHOTREXATE
     Route: 065

REACTIONS (4)
  - Psoriasis [Not Recovered/Not Resolved]
  - Off label use [Unknown]
  - Intentional product misuse [Unknown]
  - Arthralgia [Not Recovered/Not Resolved]

NARRATIVE: CASE EVENT DATE: 20240101
